FAERS Safety Report 13034910 (Version 4)
Quarter: 2017Q1

REPORT INFORMATION
  Report Type: Report from Study
  Country: BE (occurrence: BE)
  Receive Date: 20161216
  Receipt Date: 20170223
  Transmission Date: 20170428
  Serious: Yes (Hospitalization, Other)
  Sender: FDA-Public Use
  Company Number: BE-SAOL THERAPEUTICS-2016SAO01195

PATIENT

DRUGS (2)
  1. LIORESAL [Suspect]
     Active Substance: BACLOFEN
     Dosage: 112.1 ?G, \DAY
     Dates: start: 20160824, end: 20160831
  2. LIORESAL [Suspect]
     Active Substance: BACLOFEN
     Dosage: 223.4 ?G, \DAY
     Dates: start: 20160831

REACTIONS (3)
  - Implant site scar [Unknown]
  - Adhesion [Unknown]
  - Muscle spasticity [Unknown]

NARRATIVE: CASE EVENT DATE: 20160831
